FAERS Safety Report 10696137 (Version 4)
Quarter: 2015Q1

REPORT INFORMATION
  Report Type: Spontaneous
  Country: CA (occurrence: CA)
  Receive Date: 20150107
  Receipt Date: 20150206
  Transmission Date: 20150721
  Serious: Yes (Death, Hospitalization, Other)
  Sender: FDA-Public Use
  Company Number: CA-TEVA-530999USA

PATIENT
  Age: 62 Year
  Sex: Female
  Weight: 30.39 kg

DRUGS (11)
  1. TREANDA [Suspect]
     Active Substance: BENDAMUSTINE HYDROCHLORIDE
     Indication: NON-HODGKIN^S LYMPHOMA UNSPECIFIED HISTOLOGY INDOLENT
     Route: 042
     Dates: start: 20140409, end: 201408
  2. ACYCLOVIR. [Concomitant]
     Active Substance: ACYCLOVIR
     Dates: start: 20140915, end: 20150121
  3. POTASSIUM CHLORIDE. [Concomitant]
     Active Substance: POTASSIUM CHLORIDE
  4. CODEINE [Concomitant]
     Active Substance: CODEINE
  5. FOLIC ACID. [Concomitant]
     Active Substance: FOLIC ACID
  6. ZOPICLONE [Concomitant]
     Active Substance: ZOPICLONE
     Dates: start: 201410
  7. OMEPRAZOLE. [Concomitant]
     Active Substance: OMEPRAZOLE
  8. IDELALISIB [Suspect]
     Active Substance: IDELALISIB
     Indication: NON-HODGKIN^S LYMPHOMA UNSPECIFIED HISTOLOGY INDOLENT
     Dosage: 300 MILLIGRAM DAILY;
     Route: 048
     Dates: end: 201410
  9. ALENDRONATE SODIUM. [Concomitant]
     Active Substance: ALENDRONATE SODIUM
  10. RITUXIMAB [Suspect]
     Active Substance: RITUXIMAB
     Indication: NON-HODGKIN^S LYMPHOMA UNSPECIFIED HISTOLOGY INDOLENT
     Route: 042
     Dates: start: 20140409, end: 201408
  11. SENOKOT [Concomitant]
     Active Substance: SENNOSIDES

REACTIONS (2)
  - Colitis ischaemic [Unknown]
  - Pneumonia [Fatal]

NARRATIVE: CASE EVENT DATE: 20141130
